FAERS Safety Report 12479420 (Version 1)
Quarter: 2016Q2

REPORT INFORMATION
  Report Type: Spontaneous
  Country: US (occurrence: None)
  Receive Date: 20160617
  Receipt Date: 20160617
  Transmission Date: 20160815
  Serious: Yes (Hospitalization)
  Sender: FDA-Public Use
  Company Number: None

PATIENT
  Age: 10 Year
  Sex: Male
  Weight: 31.8 kg

DRUGS (1)
  1. ACCUTANE [Suspect]
     Active Substance: ISOTRETINOIN
     Dates: end: 20060323

REACTIONS (8)
  - Dizziness [None]
  - Body temperature increased [None]
  - Erythema [None]
  - Upper respiratory tract infection [None]
  - Cough [None]
  - Malaise [None]
  - Streptococcus test positive [None]
  - Chills [None]

NARRATIVE: CASE EVENT DATE: 20060405
